FAERS Safety Report 5292702-2 (Version None)
Quarter: 2007Q2

REPORT INFORMATION
  Report Type: 
  Country: None (occurrence: None)
  Receive Date: 20070404
  Receipt Date: 20070323
  Transmission Date: 20071010
  Serious: Yes (Hospitalization)
  Sender: FDA-Public Use
  Company Number: SU-2007-006059

PATIENT
  Age: 60 Year
  Sex: Female
  Weight: 84.369 kg

DRUGS (6)
  1. BENICAR [Suspect]
     Indication: HYPERTENSION
     Dosage: MG UNK PO
     Route: 048
     Dates: end: 20070312
  2. LIPITOR [Suspect]
     Dosage: MG UNK PO
     Route: 048
     Dates: end: 20070312
  3. PROCARDIA XL [Concomitant]
  4. BETA BLOCKER [Concomitant]
  5. TOPROL-XL [Concomitant]
  6. PULMICORT [Concomitant]

REACTIONS (8)
  - ACUTE PRERENAL FAILURE [None]
  - ANAEMIA [None]
  - ASTHENIA [None]
  - DEHYDRATION [None]
  - HEPATIC STEATOSIS [None]
  - HEPATITIS [None]
  - LIVER FUNCTION TEST ABNORMAL [None]
  - NAUSEA [None]
